FAERS Safety Report 9377056 (Version 1)
Quarter: 2013Q2

REPORT INFORMATION
  Report Type: Spontaneous
  Country: US (occurrence: None)
  Receive Date: 20130628
  Receipt Date: 20130628
  Transmission Date: 20140414
  Serious: Yes (Hospitalization)
  Sender: FDA-Public Use
  Company Number: None

PATIENT
  Age: 59 Year
  Sex: Male
  Weight: 145.15 kg

DRUGS (8)
  1. REMICADE [Suspect]
     Indication: COLITIS ULCERATIVE
     Dosage: INFUSION EVERY 8 WEEKS AFTER INITIAL START UP SCHEDULE.?INFUSION
     Dates: start: 20120518, end: 20130108
  2. PREDNISONE [Concomitant]
  3. LASIX [Concomitant]
  4. KLOR-CON [Concomitant]
  5. ZOLPIDEM [Concomitant]
  6. NEXIUM [Concomitant]
  7. ADVIL [Concomitant]
  8. TYLENOL [Concomitant]

REACTIONS (5)
  - Pericardial effusion [None]
  - Pleurisy [None]
  - Swelling [None]
  - Lupus-like syndrome [None]
  - Malaise [None]
